FAERS Safety Report 4819738-7 (Version None)
Quarter: 2005Q4

REPORT INFORMATION
  Report Type: 
  Country: None (occurrence: None)
  Receive Date: 20051102
  Receipt Date: 20051018
  Transmission Date: 20060501
  Serious: Yes (Hospitalization)
  Sender: FDA-Public Use
  Company Number: US-2005-018880

PATIENT
  Age: 53 Year
  Sex: Female

DRUGS (17)
  1. LEUKINE [Suspect]
     Indication: METASTATIC MALIGNANT MELANOMA
     Dosage: SEE IMAGE
     Route: 058
     Dates: start: 20050719, end: 20050728
  2. LEUKINE [Suspect]
     Indication: METASTATIC MALIGNANT MELANOMA
     Dosage: SEE IMAGE
     Route: 058
     Dates: start: 20050816, end: 20050829
  3. THALIDOMIDE (THALIDOMIDE) [Suspect]
     Indication: METASTATIC MALIGNANT MELANOMA
     Dosage: SEE IMAGE
     Route: 048
     Dates: start: 20050714, end: 20050720
  4. THALIDOMIDE (THALIDOMIDE) [Suspect]
     Indication: METASTATIC MALIGNANT MELANOMA
     Dosage: SEE IMAGE
     Route: 048
     Dates: start: 20050721, end: 20050728
  5. THALIDOMIDE (THALIDOMIDE) [Suspect]
     Indication: METASTATIC MALIGNANT MELANOMA
     Dosage: SEE IMAGE
     Route: 048
     Dates: start: 20050804, end: 20050829
  6. TEMOZOLOMIDE [Suspect]
     Indication: METASTATIC MALIGNANT MELANOMA
     Dosage: SEE IMAGE
     Route: 048
     Dates: start: 20050714, end: 20050718
  7. TEMOZOLOMIDE [Suspect]
     Indication: METASTATIC MALIGNANT MELANOMA
     Dosage: SEE IMAGE
     Route: 048
     Dates: start: 20050811, end: 20050815
  8. COUMADIN [Concomitant]
  9. LOVENOX [Concomitant]
  10. BENADRYL ^ACHE^ (AMMONIUM CHLORIDE, DIPHENHYDRAMINE HYDROCHLORIDE MENT [Concomitant]
  11. ZANTAC [Concomitant]
  12. COMPRO [Concomitant]
  13. EFFEXOR [Concomitant]
  14. FENTANYL [Concomitant]
  15. DETROL [Concomitant]
  16. MIDAZOLAM HCL [Concomitant]
  17. MORPHINE [Concomitant]

REACTIONS (13)
  - AGGRESSION [None]
  - CEREBRAL DISORDER [None]
  - CONFUSIONAL STATE [None]
  - DISORIENTATION [None]
  - DRUG HYPERSENSITIVITY [None]
  - DRUG SCREEN POSITIVE [None]
  - EOSINOPHIL PERCENTAGE INCREASED [None]
  - EOSINOPHILIA [None]
  - INTERNATIONAL NORMALISED RATIO DECREASED [None]
  - MENINGITIS [None]
  - MENTAL STATUS CHANGES [None]
  - TRANSIENT ISCHAEMIC ATTACK [None]
  - WHITE BLOOD CELL COUNT INCREASED [None]
